FAERS Safety Report 6487398-8 (Version None)
Quarter: 2009Q4

REPORT INFORMATION
  Report Type: 
  Country: None (occurrence: None)
  Receive Date: 20091210
  Receipt Date: 20091203
  Transmission Date: 20100525
  Serious: No
  Sender: FDA-Public Use
  Company Number: US-B.I. PHARMACEUTICALS,INC./RIDGEFIELD-2009-BP-13252BP

PATIENT
  Age: 44 Year
  Sex: Female

DRUGS (6)
  1. CATAPRES-TTS-1 [Suspect]
     Indication: HYPERTENSION
     Dosage: 0.3 MG
     Route: 061
     Dates: start: 20090625
  2. AMLODIPINE [Concomitant]
     Dosage: 5 MG
  3. LISINOPRIL [Concomitant]
     Dosage: 40 MG
  4. MAXALT-MLT [Concomitant]
     Indication: HEADACHE
  5. LORAZEPAM [Concomitant]
     Dosage: 3 MG
  6. TRAZODONE [Concomitant]

REACTIONS (1)
  - DRUG INEFFECTIVE [None]
